FAERS Safety Report 12798704 (Version 1)
Quarter: 2016Q3

REPORT INFORMATION
  Report Type: Report from Study
  Country: BE (occurrence: BE)
  Receive Date: 20160930
  Receipt Date: 20160930
  Transmission Date: 20161109
  Serious: Yes (Death, Hospitalization, Other)
  Sender: FDA-Public Use
  Company Number: BE-BRISTOL-MYERS SQUIBB COMPANY-BMS-2016-079719

PATIENT
  Age: 43 Year
  Sex: Male

DRUGS (1)
  1. NIVOLUMAB [Suspect]
     Active Substance: NIVOLUMAB
     Indication: LUNG NEOPLASM MALIGNANT
     Dosage: UNK
     Route: 065
     Dates: start: 201602

REACTIONS (7)
  - Pneumonia [Unknown]
  - Death [Fatal]
  - Dyspnoea [Unknown]
  - Immune system disorder [Unknown]
  - Asthenia [Unknown]
  - General physical health deterioration [Unknown]
  - White blood cell disorder [Unknown]
